FAERS Safety Report 13402680 (Version 7)
Quarter: 2017Q3

REPORT INFORMATION
  Report Type: Spontaneous
  Country: US (occurrence: US)
  Receive Date: 20170404
  Receipt Date: 20170928
  Transmission Date: 20171127
  Serious: Yes (Other)
  Sender: FDA-Public Use
  Company Number: US-JAZZ-2017-US-004095

PATIENT
  Age: 49 Year
  Sex: Female

DRUGS (4)
  1. XYREM [Suspect]
     Active Substance: SODIUM OXYBATE
     Indication: NARCOLEPSY
     Dosage: 2.25G, BID
     Route: 048
     Dates: start: 20170325
  2. XYREM [Suspect]
     Active Substance: SODIUM OXYBATE
     Indication: CATAPLEXY
     Dosage: 3.25 G, BID
     Route: 048
  3. XYREM [Suspect]
     Active Substance: SODIUM OXYBATE
     Dosage: 3.75 G, BID
     Route: 048
  4. XYREM [Suspect]
     Active Substance: SODIUM OXYBATE
     Dosage: 4G, BID
     Route: 048
     Dates: start: 2017

REACTIONS (18)
  - Sedation [Unknown]
  - Feeling abnormal [Not Recovered/Not Resolved]
  - Hallucination, auditory [Unknown]
  - Fatigue [Not Recovered/Not Resolved]
  - Nervousness [Unknown]
  - Hypersensitivity [Unknown]
  - Agitation [Unknown]
  - Anxiety [Recovering/Resolving]
  - Productive cough [Not Recovered/Not Resolved]
  - Panic reaction [Recovering/Resolving]
  - Seizure [Unknown]
  - Seborrhoea [Not Recovered/Not Resolved]
  - Dyspepsia [Recovering/Resolving]
  - Dehydration [Unknown]
  - Nausea [Not Recovered/Not Resolved]
  - Diarrhoea [Recovered/Resolved]
  - Vomiting [Not Recovered/Not Resolved]
  - Product preparation error [Unknown]

NARRATIVE: CASE EVENT DATE: 201703
